FAERS Safety Report 20893334 (Version 1)
Quarter: 2022Q2

REPORT INFORMATION
  Report Type: Spontaneous
  Country: ES (occurrence: ES)
  Receive Date: 20220531
  Receipt Date: 20220531
  Transmission Date: 20220721
  Serious: Yes (Other)
  Sender: FDA-Public Use
  Company Number: ES-AMGEN-ESPSP2022091177

PATIENT
  Age: 64 Year
  Sex: Male

DRUGS (2)
  1. ROMIPLOSTIM [Suspect]
     Active Substance: ROMIPLOSTIM
     Indication: Immune thrombocytopenia
     Dosage: 7 MICROGRAM/KG
     Route: 065
  2. PREDNISONE [Concomitant]
     Active Substance: PREDNISONE

REACTIONS (5)
  - Mucocutaneous haemorrhage [Unknown]
  - Bone marrow failure [Unknown]
  - Therapy partial responder [Unknown]
  - Anaemia [Unknown]
  - Gene mutation [Unknown]
